FAERS Safety Report 8378702-4 (Version None)
Quarter: 2012Q2

REPORT INFORMATION
  Report Type: 
  Country: None (occurrence: None)
  Receive Date: 20120522
  Receipt Date: 20120210
  Transmission Date: 20120825
  Serious: Yes (Other)
  Sender: FDA-Public Use
  Company Number: GB-MERCK-1111GBR00040

PATIENT
  Age: 91 Year
  Sex: Male

DRUGS (1)
  1. ZIOPTAN [Suspect]
     Route: 048
     Dates: start: 20090101

REACTIONS (4)
  - DRUG DOSE OMISSION [None]
  - BLINDNESS [None]
  - GROWTH OF EYELASHES [None]
  - OVERDOSE [None]
